FAERS Safety Report 21158647 (Version 1)
Quarter: 2022Q3

REPORT INFORMATION
  Report Type: Spontaneous
  Country: CO (occurrence: CO)
  Receive Date: 20220802
  Receipt Date: 20220802
  Transmission Date: 20221026
  Serious: Yes (Hospitalization, Other)
  Sender: FDA-Public Use
  Company Number: CO-SUN PHARMACEUTICAL INDUSTRIES LTD-2022R1-346236

PATIENT
  Age: 52 Year
  Sex: Female

DRUGS (1)
  1. LIOTHYRONINE [Suspect]
     Active Substance: LIOTHYRONINE
     Indication: Fatigue
     Dosage: 250 MICROGRAM, DAILY
     Route: 065
     Dates: start: 201905

REACTIONS (5)
  - Hypothyroidism [Recovered/Resolved]
  - Toxicity to various agents [Unknown]
  - Overdose [Unknown]
  - Thyroxine free decreased [Recovered/Resolved]
  - Blood thyroid stimulating hormone decreased [Unknown]
